FAERS Safety Report 23952521 (Version 1)
Quarter: 2024Q2

REPORT INFORMATION
  Report Type: Report from Study
  Country: CA (occurrence: CA)
  Receive Date: 20240607
  Receipt Date: 20240607
  Transmission Date: 20240716
  Serious: Yes (Other)
  Sender: FDA-Public Use
  Company Number: CA-TEVA-VS-3205798

PATIENT
  Age: 41 Year
  Sex: Female

DRUGS (5)
  1. AJOVY [Suspect]
     Active Substance: FREMANEZUMAB-VFRM
     Indication: Migraine prophylaxis
     Route: 058
     Dates: start: 20231109
  2. PROPRANOLOL [Concomitant]
     Active Substance: PROPRANOLOL HYDROCHLORIDE
  3. TOPIRAMATE [Concomitant]
     Active Substance: TOPIRAMATE
  4. GABAPENTIN [Concomitant]
     Active Substance: GABAPENTIN
  5. NORTRIPTYLINE [Concomitant]
     Active Substance: NORTRIPTYLINE

REACTIONS (7)
  - Epistaxis [Recovered/Resolved]
  - Psychological trauma [Unknown]
  - Feeling drunk [Recovered/Resolved]
  - Drug ineffective [Unknown]
  - Irritability [Unknown]
  - Memory impairment [Unknown]
  - Impaired driving ability [Unknown]
